FAERS Safety Report 6765824 (Version 3)
Quarter: 2013Q3

REPORT INFORMATION
  Report Type: Spontaneous
  Country: GB (occurrence: GB)
  Receive Date: 20060127
  Receipt Date: 20130821
  Transmission Date: 20140515
  Serious: Yes (Hospitalization)
  Sender: FDA-Public Use
  Company Number: GB-PFIZER INC-2006009347

PATIENT
  Age: 64 Year
  Sex: Female

DRUGS (4)
  1. SINEQUAN [Suspect]
     Route: 048
     Dates: start: 20051217, end: 20051229
  2. DAPSONE [Concomitant]
     Route: 048
  3. MINOCIN [Concomitant]
     Route: 048
  4. MORPHINE SULFATE [Concomitant]
     Route: 048

REACTIONS (8)
  - Drug administration error [Recovered/Resolved]
  - Overdose [Recovering/Resolving]
  - Hypersensitivity [Recovering/Resolving]
  - Blood alkaline phosphatase increased [Recovering/Resolving]
  - Gamma-glutamyltransferase increased [Recovering/Resolving]
  - Disorientation [Recovered/Resolved]
  - Dry mouth [Recovered/Resolved]
  - Vision blurred [Recovered/Resolved]
